FAERS Safety Report 15160232 (Version 3)
Quarter: 2018Q3

REPORT INFORMATION
  Report Type: Spontaneous
  Country: DE (occurrence: DE)
  Receive Date: 20180718
  Receipt Date: 20180830
  Transmission Date: 20181010
  Serious: Yes (Hospitalization)
  Sender: FDA-Public Use
  Company Number: DE-FERRINGPH-2018FE03653

PATIENT

DRUGS (3)
  1. PICOPREP [Suspect]
     Active Substance: ANHYDROUS CITRIC ACID\MAGNESIUM OXIDE\SODIUM PICOSULFATE
     Indication: BOWEL PREPARATION
     Dosage: 2 SACHETS
     Route: 048
     Dates: start: 20180704, end: 20180705
  2. PROPOFOL. [Suspect]
     Active Substance: PROPOFOL
     Indication: ANAESTHESIA
     Dosage: 150 MG, UNK
     Route: 042
     Dates: start: 20180705, end: 20180705
  3. MIDAZOLAM [Suspect]
     Active Substance: MIDAZOLAM HYDROCHLORIDE
     Indication: ANAESTHESIA
     Dosage: 3 G, UNK
     Route: 042
     Dates: start: 20180705, end: 20180705

REACTIONS (6)
  - Extrapyramidal disorder [Recovered/Resolved with Sequelae]
  - Seizure [Recovered/Resolved with Sequelae]
  - Hypokalaemia [Recovered/Resolved with Sequelae]
  - Psychogenic seizure [Recovered/Resolved with Sequelae]
  - Hyponatraemia [Recovered/Resolved with Sequelae]
  - Apraxia [Recovered/Resolved with Sequelae]

NARRATIVE: CASE EVENT DATE: 20180705
